FAERS Safety Report 14789531 (Version 1)
Quarter: 2018Q2

REPORT INFORMATION
  Report Type: Spontaneous
  Country: DE (occurrence: DE)
  Receive Date: 20180423
  Receipt Date: 20180423
  Transmission Date: 20180711
  Serious: Yes (Other)
  Sender: FDA-Public Use
  Company Number: DE-TEVA-2018-DE-883919

PATIENT
  Age: 49 Year
  Sex: Female

DRUGS (4)
  1. PROGESTERONE. [Suspect]
     Active Substance: PROGESTERONE
     Indication: HORMONE REPLACEMENT THERAPY
     Route: 065
  2. UTROGESTAN [Suspect]
     Active Substance: PROGESTERONE
     Indication: PREVENTION OF ENDOMETRIAL HYPERPLASIA
     Dosage: 100 MILLIGRAM DAILY; 100 MG (1 CAPSULE), DAILY
     Route: 048
     Dates: start: 201707, end: 20171011
  3. GYNOKADIN [Suspect]
     Active Substance: ESTRADIOL
     Indication: MENOPAUSAL DISORDER
     Dosage: 1 DF 1/1 DAY (S) (1 PUFF DAILY)
     Route: 062
     Dates: start: 201707, end: 20171011
  4. ESTRADIOL. [Suspect]
     Active Substance: ESTRADIOL
     Indication: HORMONE REPLACEMENT THERAPY
     Route: 065

REACTIONS (10)
  - Fatigue [Recovered/Resolved]
  - Dizziness [Recovered/Resolved]
  - Alopecia [Recovered/Resolved]
  - Cough [Recovered/Resolved]
  - Oral herpes [Recovered/Resolved]
  - Asthenia [Recovered/Resolved]
  - Limb discomfort [Recovered/Resolved]
  - Postmenopausal haemorrhage [Recovered/Resolved]
  - Acute sinusitis [Recovered/Resolved]
  - Head discomfort [Recovered/Resolved]

NARRATIVE: CASE EVENT DATE: 201707
